FAERS Safety Report 8268764-7 (Version None)
Quarter: 2012Q2

REPORT INFORMATION
  Report Type: 
  Country: None (occurrence: None)
  Receive Date: 20120409
  Receipt Date: 20120409
  Transmission Date: 20120825
  Serious: Yes (Life-Threatening, Hospitalization, Disabling, Other)
  Sender: FDA-Public Use
  Company Number: None

PATIENT
  Age: 46 Year
  Sex: Female
  Weight: 54.431 kg

DRUGS (1)
  1. TARCEVA [Suspect]
     Indication: NON-SMALL CELL LUNG CANCER STAGE IV
     Dosage: 150 MG
     Route: 048
     Dates: start: 20111122, end: 20120401

REACTIONS (7)
  - EATING DISORDER [None]
  - GAIT DISTURBANCE [None]
  - LIVER INJURY [None]
  - SPEECH DISORDER [None]
  - TOXICITY TO VARIOUS AGENTS [None]
  - INTERSTITIAL LUNG DISEASE [None]
  - DYSPHAGIA [None]
